FAERS Safety Report 15464545 (Version 3)
Quarter: 2018Q4

REPORT INFORMATION
  Report Type: Spontaneous
  Country: US (occurrence: US)
  Receive Date: 20181004
  Receipt Date: 20181207
  Transmission Date: 20190204
  Serious: Yes (Other)
  Sender: FDA-Public Use
  Company Number: US-SAOL THERAPEUTICS-2018SAO01025

PATIENT
  Age: 38 Year
  Sex: Male

DRUGS (2)
  1. LIORESAL [Suspect]
     Active Substance: BACLOFEN
     Dosage: UNK
     Route: 037
     Dates: end: 201809
  2. LIORESAL [Suspect]
     Active Substance: BACLOFEN
     Dosage: UNK; PUMP SET TO MINIMUM RATE
     Route: 037
     Dates: start: 201809

REACTIONS (3)
  - Hypotonia [Not Recovered/Not Resolved]
  - Areflexia [Not Recovered/Not Resolved]
  - Muscular weakness [Not Recovered/Not Resolved]

NARRATIVE: CASE EVENT DATE: 20180913
